FAERS Safety Report 4529596-6 (Version None)
Quarter: 2004Q4

REPORT INFORMATION
  Report Type: 
  Country: None (occurrence: None)
  Receive Date: 20041214
  Receipt Date: 20041202
  Transmission Date: 20050328
  Serious: Yes (Death)
  Sender: FDA-Public Use
  Company Number: HQWYE768606DEC04

PATIENT
  Age: 23 Month
  Sex: Female
  Weight: 9.08 kg

DRUGS (1)
  1. PHENERGAN [Suspect]
     Indication: VOMITING
     Dosage: 50 MG (OVERDOSE AMOUNT), RECTAL
     Route: 054
     Dates: start: 20040313, end: 20040313

REACTIONS (5)
  - ACCIDENTAL OVERDOSE [None]
  - ATRIOVENTRICULAR BLOCK [None]
  - CARDIO-RESPIRATORY ARREST [None]
  - MEDICATION ERROR [None]
  - MULTIPLE DRUG OVERDOSE [None]
